FAERS Safety Report 11340416 (Version 1)
Quarter: 2015Q3

REPORT INFORMATION
  Report Type: Spontaneous
  Country: IT (occurrence: IT)
  Receive Date: 20150805
  Receipt Date: 20150805
  Transmission Date: 20151125
  Serious: Yes (Other)
  Sender: FDA-Public Use
  Company Number: IT-TEVA-583495ACC

PATIENT
  Age: 54 Year
  Sex: Female

DRUGS (2)
  1. OKI - 80 MG GRANULATO PER SOLUZIONE ORALE [Suspect]
     Active Substance: KETOPROFEN LYSINE
     Indication: TOOTHACHE
     Dosage: 80 MILLIGRAM DAILY; 80 MG TOTAL, GRANULES FOR ORAL SOLUTION
     Route: 048
     Dates: start: 20150724, end: 20150724
  2. AMOXICILLIN AND CLAVULANATE POTASSIUM [Suspect]
     Active Substance: AMOXICILLIN\CLAVULANATE POTASSIUM
     Indication: TOOTH ABSCESS
     Dosage: 1 DOSAGE FORMS DAILY; 1 DOSAGE FORM (DF) TOTAL
     Route: 048
     Dates: start: 20150724, end: 20150724

REACTIONS (4)
  - Asthenia [Recovering/Resolving]
  - Erythema [Recovering/Resolving]
  - Pruritus [Recovering/Resolving]
  - Lip oedema [Recovering/Resolving]

NARRATIVE: CASE EVENT DATE: 20150724
